FAERS Safety Report 25470735 (Version 1)
Quarter: 2025Q2

REPORT INFORMATION
  Report Type: Spontaneous
  Country: ES (occurrence: ES)
  Receive Date: 20250624
  Receipt Date: 20250624
  Transmission Date: 20250717
  Serious: Yes (Death)
  Sender: ROCHE
  Company Number: None

PATIENT
  Age: 71 Year
  Sex: Male
  Weight: 70 kg

DRUGS (3)
  1. TECENTRIQ [Suspect]
     Active Substance: ATEZOLIZUMAB
     Indication: Transitional cell carcinoma
     Route: 058
     Dates: start: 20250205, end: 20250205
  2. CANDESARTAN CINFA 16 mg COMPRIMIDOS EFG, 28 comprimidos [Concomitant]
     Indication: Hypertension
     Route: 048
     Dates: start: 20240101
  3. LIVAZO 2 mg COMPRIMIDOS RECUBIERTOS CON PELICULA, 28 comprimidos [Concomitant]
     Indication: Hypercholesterolaemia
     Route: 048
     Dates: start: 20240101

REACTIONS (1)
  - Fournier^s gangrene [Fatal]

NARRATIVE: CASE EVENT DATE: 20250208
